FAERS Safety Report 5869930-8 (Version None)
Quarter: 2008Q3

REPORT INFORMATION
  Report Type: 
  Country: None (occurrence: None)
  Receive Date: 20080904
  Receipt Date: 20080827
  Transmission Date: 20090109
  Serious: Yes (Other)
  Sender: FDA-Public Use
  Company Number: PHHY2008DE19580

PATIENT
  Sex: Male

DRUGS (9)
  1. RASILEZ [Suspect]
     Indication: HYPERTENSION
     Dosage: 150 MG, QD
     Dates: start: 20080701, end: 20080801
  2. CORINFAR - SLOW RELEASE [Suspect]
     Indication: HYPERTENSION
     Dosage: 2 DF, QD
     Dates: end: 20080701
  3. CORINFAR - SLOW RELEASE [Suspect]
     Dosage: 4 DF, QD
     Dates: start: 20080701
  4. BLOPRESS [Concomitant]
     Indication: HYPERTENSION
  5. RAMIPRIL [Concomitant]
     Indication: HYPERTENSION
  6. METOPROLOL SUCCINATE [Concomitant]
     Indication: HYPERTENSION
  7. TORSEMIDE [Concomitant]
     Indication: HYPERTENSION
  8. INSULIN [Concomitant]
     Dosage: 12 IU, BID
  9. INSULIN [Concomitant]
     Dosage: 18 IU, BID

REACTIONS (3)
  - DIABETES MELLITUS [None]
  - OEDEMA PERIPHERAL [None]
  - PAIN [None]
